FAERS Safety Report 5992003-0 (Version None)
Quarter: 2008Q4

REPORT INFORMATION
  Report Type: 
  Country: None (occurrence: None)
  Receive Date: 20081202
  Receipt Date: 20080609
  Transmission Date: 20090506
  Serious: Yes (Other)
  Sender: FDA-Public Use
  Company Number: WAES 0806USA01505

PATIENT
  Age: 56 Year
  Sex: Female
  Weight: 73.0291 kg

DRUGS (5)
  1. FOSAMAX [Suspect]
     Indication: OSTEOPOROSIS
     Dosage: 70 MG/WKY/PO
     Route: 048
     Dates: start: 20030116, end: 20080605
  2. PREVACID [Concomitant]
  3. WELLBUTRIN SR [Concomitant]
  4. IMIPRAMINE HYDROCHLORIDE [Concomitant]
  5. LORAZEPAM [Concomitant]

REACTIONS (1)
  - OSTEONECROSIS [None]
